FAERS Safety Report 10692575 (Version 3)
Quarter: 2015Q3

REPORT INFORMATION
  Report Type: Spontaneous
  Country: US (occurrence: US)
  Receive Date: 20150106
  Receipt Date: 20150826
  Transmission Date: 20151125
  Serious: No
  Sender: FDA-Public Use
  Company Number: US-PFIZER INC-2015003087

PATIENT
  Age: 46 Year
  Sex: Female
  Weight: 119 kg

DRUGS (1)
  1. LYRICA [Suspect]
     Active Substance: PREGABALIN
     Indication: NERVE INJURY
     Dosage: 75 MG, 2X/DAY
     Route: 048
     Dates: end: 20141212

REACTIONS (3)
  - Drug ineffective [Unknown]
  - Drug dispensing error [Unknown]
  - Malaise [Unknown]
